FAERS Safety Report 7666376-7 (Version None)
Quarter: 2011Q3

REPORT INFORMATION
  Report Type: 
  Country: None (occurrence: None)
  Receive Date: 20110806
  Receipt Date: 20110315
  Transmission Date: 20111222
  Serious: No
  Sender: FDA-Public Use
  Company Number: US-ABBOTT-11P-163-0712967-00

PATIENT
  Sex: Male
  Weight: 93.978 kg

DRUGS (1)
  1. NIASPAN [Suspect]
     Indication: HYPERTRIGLYCERIDAEMIA
     Dosage: AT NIGHT
     Dates: start: 20110311, end: 20110312

REACTIONS (4)
  - ASTHENIA [None]
  - DIZZINESS [None]
  - FLUSHING [None]
  - HEART RATE INCREASED [None]
